FAERS Safety Report 14215557 (Version 2)
Quarter: 2018Q4

REPORT INFORMATION
  Report Type: Report from Study
  Country: PL (occurrence: PL)
  Receive Date: 20171122
  Receipt Date: 20181204
  Transmission Date: 20190204
  Serious: Yes (Hospitalization)
  Sender: FDA-Public Use
  Company Number: PL-ASTRAZENECA-2017SF01473

PATIENT
  Age: 24010 Day
  Sex: Female

DRUGS (23)
  1. ROSUVASTATIN. [Concomitant]
     Active Substance: ROSUVASTATIN
     Indication: HYPERTRIGLYCERIDAEMIA
     Route: 048
     Dates: start: 2010
  2. INSULIN INJECTION, ISOPHANE [Concomitant]
     Active Substance: INSULIN HUMAN
     Indication: TYPE 2 DIABETES MELLITUS
     Route: 058
     Dates: start: 20161115
  3. BISOPROLOL [Concomitant]
     Active Substance: BISOPROLOL
     Indication: HYPERTENSION
     Route: 048
     Dates: start: 20161115
  4. VALPROIC ACID. [Concomitant]
     Active Substance: VALPROIC ACID
     Indication: DIABETIC NEUROPATHY
     Route: 048
     Dates: start: 201608
  5. EPANOVA [Suspect]
     Active Substance: OMEGA-3-CARBOXYLIC ACIDS
     Indication: HYPERTRIGLYCERIDAEMIA
     Route: 048
     Dates: start: 20151126, end: 20170929
  6. INSULIN INJECTION, ISOPHANE [Concomitant]
     Active Substance: INSULIN HUMAN
     Indication: TYPE 2 DIABETES MELLITUS
     Route: 058
     Dates: start: 20151126, end: 20160524
  7. VALPROIC ACID. [Concomitant]
     Active Substance: VALPROIC ACID
     Indication: DIABETIC NEUROPATHY
     Route: 048
     Dates: start: 20160525, end: 20160531
  8. VALPROIC ACID. [Concomitant]
     Active Substance: VALPROIC ACID
     Indication: DIABETIC NEUROPATHY
     Route: 048
     Dates: start: 20160601, end: 201608
  9. VALPROIC ACID. [Concomitant]
     Active Substance: VALPROIC ACID
     Indication: POST-TRAUMATIC EPILEPSY
     Route: 048
     Dates: start: 201608
  10. INSULIN INJECTION, ISOPHANE [Concomitant]
     Active Substance: INSULIN HUMAN
     Indication: TYPE 2 DIABETES MELLITUS
     Route: 058
     Dates: end: 20151125
  11. INSULIN POLHUMIN R [Concomitant]
     Indication: TYPE 2 DIABETES MELLITUS
     Route: 058
     Dates: start: 20160525
  12. BISOPROLOL [Concomitant]
     Active Substance: BISOPROLOL
     Indication: HYPERTENSION
     Route: 048
     Dates: end: 20161114
  13. VALPROIC ACID. [Concomitant]
     Active Substance: VALPROIC ACID
     Indication: POST-TRAUMATIC EPILEPSY
     Route: 048
     Dates: start: 20160601, end: 201608
  14. ACETYLSALICYLIC ACID [Concomitant]
     Active Substance: ASPIRIN
     Indication: CARDIOVASCULAR EVENT PROPHYLAXIS
     Route: 048
  15. METFORMIN [Concomitant]
     Active Substance: METFORMIN HYDROCHLORIDE
     Indication: TYPE 2 DIABETES MELLITUS
     Route: 048
  16. VALPROIC ACID. [Concomitant]
     Active Substance: VALPROIC ACID
     Indication: DIABETIC NEUROPATHY
     Route: 048
     Dates: start: 201608
  17. REGITAL [Concomitant]
     Indication: ALOPECIA
     Route: 048
     Dates: start: 2015
  18. INSULIN INJECTION, ISOPHANE [Concomitant]
     Active Substance: INSULIN HUMAN
     Indication: TYPE 2 DIABETES MELLITUS
     Route: 058
     Dates: start: 20160525, end: 20161114
  19. INSULIN INJECTION, ISOPHANE [Concomitant]
     Active Substance: INSULIN HUMAN
     Indication: TYPE 2 DIABETES MELLITUS
     Route: 058
     Dates: start: 20160525
  20. VALPROIC ACID. [Concomitant]
     Active Substance: VALPROIC ACID
     Indication: POST-TRAUMATIC EPILEPSY
     Route: 048
     Dates: start: 20160525, end: 20160531
  21. VINPOCETINE [Concomitant]
     Active Substance: VINPOCETINE
     Indication: TINNITUS
     Route: 048
     Dates: start: 20151201
  22. INSULIN POLHUMIN R [Concomitant]
     Indication: TYPE 2 DIABETES MELLITUS
     Route: 058
     Dates: start: 20151126, end: 20160524
  23. VALPROIC ACID. [Concomitant]
     Active Substance: VALPROIC ACID
     Indication: POST-TRAUMATIC EPILEPSY
     Route: 048
     Dates: start: 201608

REACTIONS (1)
  - Duodenitis [Recovered/Resolved]

NARRATIVE: CASE EVENT DATE: 20170701
